FAERS Safety Report 7798723-X (Version None)
Quarter: 2011Q4

REPORT INFORMATION
  Report Type: 
  Country: None (occurrence: None)
  Receive Date: 20111006
  Receipt Date: 20110926
  Transmission Date: 20120403
  Serious: No
  Sender: FDA-Public Use
  Company Number: US-BIOGENIDEC-2011BI036950

PATIENT
  Age: 32 Year
  Sex: Female

DRUGS (2)
  1. AVONEX [Suspect]
     Indication: MULTIPLE SCLEROSIS
     Route: 030
     Dates: start: 20110726
  2. CITALOPRAM HYDROBROMIDE [Concomitant]
     Indication: ANXIETY

REACTIONS (5)
  - DYSPHONIA [None]
  - ELECTROCARDIOGRAM CHANGE [None]
  - HEART RATE INCREASED [None]
  - CHEST DISCOMFORT [None]
  - DIZZINESS [None]
